FAERS Safety Report 5399690-9 (Version None)
Quarter: 2007Q3

REPORT INFORMATION
  Report Type: 
  Country: None (occurrence: None)
  Receive Date: 20070727
  Receipt Date: 20070718
  Transmission Date: 20080115
  Serious: Yes (Hospitalization)
  Sender: FDA-Public Use
  Company Number: FR-PFIZER INC-2007060085

PATIENT
  Age: 50 Year
  Sex: Male

DRUGS (25)
  1. TRIFLUCAN [Suspect]
     Route: 042
  2. HOLOXAN [Suspect]
     Dosage: DAILY DOSE:1.7GRAM
     Route: 042
     Dates: start: 20070423, end: 20070426
  3. NAVELBINE ^ROBAPHARM^ [Suspect]
     Route: 042
     Dates: start: 20070423, end: 20070423
  4. MITOXANTRONE [Suspect]
     Dosage: DAILY DOSE:17MG-FREQ:FREQUENCY: DAILY
     Route: 042
     Dates: start: 20070423, end: 20070423
  5. ACUPAN [Suspect]
     Route: 042
  6. CLAFORAN [Suspect]
     Route: 042
  7. VANCOMYCIN [Suspect]
     Dosage: DAILY DOSE:2GRAM
     Route: 042
  8. BACTRIM [Suspect]
     Route: 042
  9. NORVIR [Concomitant]
  10. FOSAMPRENAVIR [Concomitant]
  11. RETROVIR [Concomitant]
  12. EMTRICITABINE [Concomitant]
  13. KARDEGIC [Concomitant]
  14. PLAVIX [Concomitant]
  15. SUBUTEX [Concomitant]
  16. TRINITRINE [Concomitant]
  17. ACETAMINOPHEN [Concomitant]
  18. PROFENID [Concomitant]
  19. AUGMENTIN '125' [Concomitant]
  20. SILOMAT [Concomitant]
  21. INIPOMP [Concomitant]
  22. AMIKLIN [Concomitant]
  23. LOVENOX [Concomitant]
  24. CORTANCYL [Concomitant]
     Dosage: DAILY DOSE:53MG
  25. NEORECORMON ^ROCHE^ [Concomitant]

REACTIONS (1)
  - STATUS EPILEPTICUS [None]
